FAERS Safety Report 7464919-X (Version None)
Quarter: 2011Q2

REPORT INFORMATION
  Report Type: 
  Country: None (occurrence: None)
  Receive Date: 20110509
  Receipt Date: 20110419
  Transmission Date: 20111010
  Serious: Yes (Other)
  Sender: FDA-Public Use
  Company Number: US-BAYER-201040712NA

PATIENT
  Age: 62 Year
  Sex: Female
  Weight: 59.42 kg

DRUGS (11)
  1. VANCOMYCIN [Concomitant]
     Dosage: 1 G, UNK
     Route: 042
     Dates: start: 20060501
  2. HEPARIN [Concomitant]
  3. HYDROCHLOROTHIAZIDE [Concomitant]
     Indication: HYPERTENSION
     Dosage: UNK
     Route: 048
     Dates: start: 20060101
  4. FENTANYL [Concomitant]
     Dosage: UNK
  5. INSULIN [Concomitant]
  6. BLOOD AND RELATED PRODUCTS [Concomitant]
     Dosage: 1 U, UNK
     Route: 042
  7. TRASYLOL [Suspect]
     Indication: CORONARY ARTERY BYPASS
  8. TRASYLOL [Suspect]
     Indication: AORTIC VALVE REPLACEMENT
  9. TRASYLOL [Suspect]
     Indication: AORTIC VALVE REPAIR
     Dosage: UNK 200CC TWICE
     Route: 042
     Dates: start: 20060501, end: 20060501
  10. TRASYLOL [Suspect]
     Indication: CATHETER PLACEMENT
  11. METOPROLOL [Concomitant]
     Indication: HYPERTENSION
     Dosage: UNK
     Route: 048
     Dates: start: 20060101

REACTIONS (14)
  - MYOCARDIAL INFARCTION [None]
  - MULTI-ORGAN FAILURE [None]
  - RENAL INJURY [None]
  - ANXIETY [None]
  - FEAR [None]
  - RENAL FAILURE [None]
  - LUNG DISORDER [None]
  - STRESS [None]
  - INJURY [None]
  - EMOTIONAL DISTRESS [None]
  - UNEVALUABLE EVENT [None]
  - PAIN [None]
  - RENAL IMPAIRMENT [None]
  - DISABILITY [None]
